FAERS Safety Report 10984184 (Version 2)
Quarter: 2015Q2

REPORT INFORMATION
  Report Type: Spontaneous
  Country: US (occurrence: US)
  Receive Date: 20150403
  Receipt Date: 20150422
  Transmission Date: 20150821
  Serious: No
  Sender: FDA-Public Use
  Company Number: US-TEVA-552717USA

PATIENT
  Age: 22 Year
  Sex: Female
  Weight: 106.69 kg

DRUGS (2)
  1. LEVOTHYROXINE [Concomitant]
     Active Substance: LEVOTHYROXINE
     Indication: HYPOTHYROIDISM
  2. PARAGARD T 380A [Suspect]
     Active Substance: COPPER
     Indication: CONTRACEPTION
     Route: 015
     Dates: start: 20141017, end: 20150327

REACTIONS (6)
  - Dyspareunia [Recovered/Resolved]
  - Oligomenorrhoea [Unknown]
  - Vulvovaginal discomfort [Unknown]
  - Device expulsion [Recovered/Resolved]
  - Vulvovaginal pruritus [Unknown]
  - Muscle spasms [Recovered/Resolved]

NARRATIVE: CASE EVENT DATE: 20141114
